FAERS Safety Report 8887272 (Version 1)
Quarter: 2012Q4

REPORT INFORMATION
  Report Type: 
  Country: US (occurrence: US)
  Receive Date: 20121105
  Receipt Date: 20121105
  Transmission Date: 20130627
  Serious: No
  Sender: FDA-Public Use
  Company Number: US-PFIZER INC-2012272425

PATIENT
  Age: 53 Year
  Sex: Female
  Weight: 82 kg

DRUGS (3)
  1. PREMARIN [Suspect]
     Indication: MENOPAUSE
     Dosage: 1.25 mg, Daily
     Dates: end: 201210
  2. PROVERA [Suspect]
     Indication: MENOPAUSE
     Dosage: 10 mg, daily
  3. NOVOLIN R [Concomitant]
     Indication: DIABETES
     Dosage: 48 units in morning and 12 units in night

REACTIONS (1)
  - Hot flush [Not Recovered/Not Resolved]
